FAERS Safety Report 11637423 (Version 4)
Quarter: 2017Q1

REPORT INFORMATION
  Report Type: Spontaneous
  Country: US (occurrence: US)
  Receive Date: 20151016
  Receipt Date: 20170315
  Transmission Date: 20170428
  Serious: Yes (Other)
  Sender: FDA-Public Use
  Company Number: US-PFIZER INC-2015315851

PATIENT
  Age: 52 Year
  Sex: Female
  Weight: 91 kg

DRUGS (3)
  1. IBRANCE [Suspect]
     Active Substance: PALBOCICLIB
     Dosage: 125 MG, CYCLIC (DAY 1-21 EVERY (Q) 28 DAYS)
     Route: 048
     Dates: start: 20150625
  2. IBRANCE [Suspect]
     Active Substance: PALBOCICLIB
     Indication: BREAST CANCER METASTATIC
     Dosage: 125 MG, CYCLIC (DAY 1-21 EVERY (Q) 28 DAYS)
     Route: 048
     Dates: start: 20150625
  3. IBRANCE [Suspect]
     Active Substance: PALBOCICLIB
     Dosage: 125 MG, CYCLIC (DAY 1-21 EVERY (Q) 28 DAYS)
     Route: 048
     Dates: start: 20150625

REACTIONS (7)
  - Upper respiratory tract infection [Unknown]
  - Neoplasm progression [Unknown]
  - Vision blurred [Unknown]
  - Pulmonary congestion [Unknown]
  - Pneumonia [Unknown]
  - White blood cell count decreased [Unknown]
  - Cough [Unknown]

NARRATIVE: CASE EVENT DATE: 201509
